FAERS Safety Report 4906351-6 (Version None)
Quarter: 2006Q1

REPORT INFORMATION
  Report Type: 
  Country: None (occurrence: None)
  Receive Date: 20060209
  Receipt Date: 20060130
  Transmission Date: 20060701
  Serious: Yes (Hospitalization)
  Sender: FDA-Public Use
  Company Number: FR-JNJFOC-20060200007

PATIENT
  Sex: Female

DRUGS (8)
  1. RISPERDAL [Suspect]
     Indication: DRUG USE FOR UNKNOWN INDICATION
     Route: 048
  2. DI-ANTALVIC [Concomitant]
  3. DI-ANTALVIC [Concomitant]
  4. HUMALOG [Concomitant]
  5. COVERSYL [Concomitant]
  6. VASTEN [Concomitant]
  7. MOPRAL [Concomitant]
  8. PREVISCAN [Concomitant]

REACTIONS (3)
  - ABDOMINAL PAIN [None]
  - COLITIS [None]
  - INTESTINAL ISCHAEMIA [None]
